FAERS Safety Report 9281826 (Version 1)
Quarter: 2013Q2

REPORT INFORMATION
  Report Type: Report from Study
  Country: CN (occurrence: CN)
  Receive Date: 20130510
  Receipt Date: 20130510
  Transmission Date: 20140414
  Serious: Yes (Other)
  Sender: FDA-Public Use
  Company Number: CN-ROCHE-1221048

PATIENT
  Age: 43 Year
  Sex: Female
  Weight: 50 kg

DRUGS (3)
  1. CELLCEPT [Suspect]
     Indication: RENAL TRANSPLANT
     Route: 048
     Dates: start: 20000123
  2. CICLOSPORIN A [Concomitant]
     Indication: RENAL TRANSPLANT
     Route: 048
     Dates: start: 20000123
  3. CORDYCEPS SINENSIS [Concomitant]
     Route: 048
     Dates: start: 2006

REACTIONS (7)
  - Cystitis glandularis [Unknown]
  - Neoplasm [Unknown]
  - Anaemia [Not Recovered/Not Resolved]
  - White blood cell count decreased [Recovered/Resolved]
  - Dysuria [Unknown]
  - Haematuria [Not Recovered/Not Resolved]
  - Proteinuria [Not Recovered/Not Resolved]
